FAERS Safety Report 22151830 (Version 1)
Quarter: 2023Q1

REPORT INFORMATION
  Report Type: Spontaneous
  Country: US (occurrence: None)
  Receive Date: 20230329
  Receipt Date: 20230329
  Transmission Date: 20230418
  Serious: No
  Sender: FDA-Public Use
  Company Number: None

PATIENT
  Age: 62 Year
  Sex: Female
  Weight: 78.75 kg

DRUGS (1)
  1. CELECOXIB [Suspect]
     Active Substance: CELECOXIB

REACTIONS (4)
  - Pain [None]
  - Inflammation [None]
  - Product substitution issue [None]
  - Product formulation issue [None]
